FAERS Safety Report 13827387 (Version 1)
Quarter: 2017Q3

REPORT INFORMATION
  Report Type: Spontaneous
  Country: US (occurrence: US)
  Receive Date: 20170802
  Receipt Date: 20170802
  Transmission Date: 20171127
  Serious: No
  Sender: FDA-Public Use
  Company Number: US-ROCHE-659957

PATIENT
  Sex: Female

DRUGS (9)
  1. ENDOCET [Concomitant]
     Active Substance: ACETAMINOPHEN\OXYCODONE HYDROCHLORIDE
     Dosage: DOSE: 10/325 MG
     Route: 065
  2. PAROXETINE. [Concomitant]
     Active Substance: PAROXETINE
     Dosage: DRUG: PAROXETINE HCL 20MG,
     Route: 065
  3. ROZEREM [Concomitant]
     Active Substance: RAMELTEON
     Route: 065
  4. BONIVA [Suspect]
     Active Substance: IBANDRONATE SODIUM
     Indication: OSTEOPOROSIS
     Route: 048
     Dates: start: 200712, end: 20090902
  5. TRAZODONE [Concomitant]
     Active Substance: TRAZODONE HYDROCHLORIDE
     Route: 065
  6. PLAQUENIL [Concomitant]
     Active Substance: HYDROXYCHLOROQUINE SULFATE
     Route: 065
  7. SIMVASTATIN. [Concomitant]
     Active Substance: SIMVASTATIN
     Route: 065
  8. CELEBREX [Concomitant]
     Active Substance: CELECOXIB
     Dosage: AS NEEDED
     Route: 065
  9. CALCIUM [Concomitant]
     Active Substance: CALCIUM
     Route: 065

REACTIONS (2)
  - Treatment failure [Unknown]
  - Osteopenia [Unknown]
